FAERS Safety Report 11832421 (Version 10)
Quarter: 2020Q4

REPORT INFORMATION
  Report Type: Spontaneous
  Country: US (occurrence: US)
  Receive Date: 20151214
  Receipt Date: 20201215
  Transmission Date: 20210113
  Serious: No
  Sender: FDA-Public Use
  Company Number: US-PFIZER INC-2015421317

PATIENT
  Age: 69 Year
  Sex: Male
  Weight: 61 kg

DRUGS (4)
  1. VIAGRA [Suspect]
     Active Substance: SILDENAFIL CITRATE
     Indication: URINARY TRACT INJURY
     Dosage: 100 MG, 1X/DAY (TAKE A PILL A DAY)
     Route: 048
  2. VIAGRA [Suspect]
     Active Substance: SILDENAFIL CITRATE
     Dosage: 100 MG, 1X/DAY
     Route: 048
     Dates: start: 2018
  3. VIAGRA [Suspect]
     Active Substance: SILDENAFIL CITRATE
     Indication: ERECTILE DYSFUNCTION
     Dosage: 100 MG, ALTERNATE DAY
     Route: 048
     Dates: start: 20151112
  4. VIAGRA [Suspect]
     Active Substance: SILDENAFIL CITRATE
     Dosage: 50 MG, UNK (HALF THE PILL)
     Route: 048

REACTIONS (5)
  - Peyronie^s disease [Unknown]
  - Weight fluctuation [Unknown]
  - Intentional product use issue [Unknown]
  - Drug ineffective [Unknown]
  - Off label use [Unknown]
